FAERS Safety Report 4700410-9 (Version None)
Quarter: 2005Q2

REPORT INFORMATION
  Report Type: 
  Country: None (occurrence: None)
  Receive Date: 20050627
  Receipt Date: 20050207
  Transmission Date: 20051028
  Serious: Yes (Other)
  Sender: FDA-Public Use
  Company Number: JP-ROCHE-395794

PATIENT
  Age: 9 Year
  Sex: Female

DRUGS (2)
  1. TAMIFLU [Suspect]
     Route: 048
     Dates: start: 20050205, end: 20050205
  2. CALONAL [Concomitant]
     Route: 048
     Dates: start: 20050205, end: 20050205

REACTIONS (2)
  - SWELLING FACE [None]
  - URTICARIA [None]
